FAERS Safety Report 16271361 (Version 4)
Quarter: 2019Q3

REPORT INFORMATION
  Report Type: Report from Study
  Country: RU (occurrence: RU)
  Receive Date: 20190503
  Receipt Date: 20190702
  Transmission Date: 20191004
  Serious: Yes (Hospitalization)
  Sender: FDA-Public Use
  Company Number: RU-PFIZER INC-2019188872

PATIENT
  Age: 26 Year
  Sex: Male
  Weight: 96 kg

DRUGS (1)
  1. XELJANZ [Suspect]
     Active Substance: TOFACITINIB CITRATE
     Indication: COLITIS ULCERATIVE
     Dosage: 10 MG, 2X/DAY
     Route: 048
     Dates: start: 20150305, end: 20190430

REACTIONS (2)
  - Acne [Recovered/Resolved]
  - Eosinophilic pustular folliculitis [Recovered/Resolved]

NARRATIVE: CASE EVENT DATE: 20190429
